FAERS Safety Report 4632809-3 (Version None)
Quarter: 2005Q2

REPORT INFORMATION
  Report Type: 
  Country: None (occurrence: None)
  Receive Date: 20050412
  Receipt Date: 20050404
  Transmission Date: 20051028
  Serious: Yes (Other)
  Sender: FDA-Public Use
  Company Number: 200510926EU

PATIENT
  Age: 1 Day
  Sex: Female

DRUGS (2)
  1. LANTUS [Suspect]
     Indication: DIABETES MELLITUS
     Route: 064
     Dates: start: 20040722
  2. NOVORAPID [Suspect]
     Indication: DIABETES MELLITUS
     Dosage: DOSE: 20-24
     Route: 064
     Dates: start: 20040722

REACTIONS (7)
  - APGAR SCORE LOW [None]
  - CAESAREAN SECTION [None]
  - DRUG EXPOSURE DURING PREGNANCY [None]
  - FOETAL DISTRESS SYNDROME [None]
  - PREMATURE BABY [None]
  - RESPIRATORY DISTRESS [None]
  - RHESUS HAEMOLYTIC DISEASE OF NEWBORN [None]
